FAERS Safety Report 7332000-6 (Version None)
Quarter: 2011Q1

REPORT INFORMATION
  Report Type: 
  Country: None (occurrence: None)
  Receive Date: 20110222
  Receipt Date: 20110207
  Transmission Date: 20110831
  Serious: Yes (Death, Life-Threatening, Hospitalization)
  Sender: FDA-Public Use
  Company Number: 2011CP000022

PATIENT
  Sex: Female

DRUGS (7)
  1. METHYLPREDNISOLONE [Suspect]
     Indication: METASTASES TO MENINGES
     Dosage: INTH
     Route: 037
     Dates: start: 20100325, end: 20100422
  2. CYTARABINE [Suspect]
     Indication: METASTASES TO MENINGES
     Dosage: INTH
     Route: 037
     Dates: start: 20100325, end: 20100422
  3. PERFALGAN (PARACETAMOL) [Suspect]
     Dosage: IV
     Route: 042
     Dates: start: 20100325, end: 20100422
  4. METHOTREXATE [Suspect]
     Indication: METASTASIS
     Dosage: INTH
     Route: 037
     Dates: start: 20100325, end: 20100422
  5. CALCIUM LEVOFOLINATE (CALCIUM LEVOFOLINATE) [Suspect]
     Indication: PROPHYLAXIS
     Dosage: IV
     Route: 042
     Dates: start: 20100328
  6. HEPARIN SODIUM [Suspect]
     Indication: PROPHYLAXIS
     Dosage: IV
     Route: 042
     Dates: start: 20100302, end: 20100330
  7. FLUCONAZOLE [Suspect]
     Dosage: IV
     Route: 042
     Dates: start: 20100327, end: 20100428

REACTIONS (16)
  - BONE MARROW FAILURE [None]
  - METASTASES TO MENINGES [None]
  - ENCEPHALOPATHY [None]
  - DISTURBANCE IN ATTENTION [None]
  - PLATELET COUNT DECREASED [None]
  - CHEST X-RAY ABNORMAL [None]
  - WHITE BLOOD CELL COUNT DECREASED [None]
  - INTRACRANIAL HAEMATOMA [None]
  - NEUTROPENIA [None]
  - HEMIPLEGIA [None]
  - DILATATION VENTRICULAR [None]
  - FEBRILE BONE MARROW APLASIA [None]
  - ABNORMAL BEHAVIOUR [None]
  - ANAEMIA [None]
  - DRUG INEFFECTIVE [None]
  - HODGKIN'S DISEASE REFRACTORY [None]
